FAERS Safety Report 7645989-2 (Version None)
Quarter: 2011Q3

REPORT INFORMATION
  Report Type: 
  Country: None (occurrence: None)
  Receive Date: 20110730
  Receipt Date: 20110726
  Transmission Date: 20111222
  Serious: Yes (Hospitalization)
  Sender: FDA-Public Use
  Company Number: US-B.I. PHARMACEUTICALS,INC./RIDGEFIELD-2011-BP-16815BP

PATIENT
  Age: 78 Year
  Sex: Female

DRUGS (7)
  1. PRADAXA [Suspect]
     Indication: ATRIAL FIBRILLATION
  2. LISINOPRIL [Concomitant]
     Dosage: 20 MG
     Dates: start: 20060125
  3. CARVEDILOL [Concomitant]
     Dosage: 3.125 MG
     Dates: start: 20100101
  4. FUROSEMIDE [Concomitant]
     Dosage: 20 MG
     Dates: start: 20100901
  5. SIMVASTATIN [Concomitant]
     Dosage: 10 MG
     Dates: start: 20101020
  6. MULTAQ [Concomitant]
     Dosage: 400 MG
     Dates: start: 20110608
  7. PRADAXA [Suspect]
     Indication: CEREBROVASCULAR ACCIDENT PROPHYLAXIS
     Dosage: 300 MG
     Dates: start: 20110608

REACTIONS (1)
  - GASTROINTESTINAL HAEMORRHAGE [None]
